FAERS Safety Report 6660178-6 (Version None)
Quarter: 2010Q1

REPORT INFORMATION
  Report Type: 
  Country: None (occurrence: None)
  Receive Date: 20100331
  Receipt Date: 20100304
  Transmission Date: 20100710
  Serious: No
  Sender: FDA-Public Use
  Company Number: 2009BI022787

PATIENT
  Sex: Female

DRUGS (1)
  1. TYSABRI [Suspect]
     Indication: MULTIPLE SCLEROSIS
     Route: 042
     Dates: start: 20090421

REACTIONS (8)
  - ASTHENIA [None]
  - CHILLS [None]
  - FATIGUE [None]
  - FEELING COLD [None]
  - MALAISE [None]
  - MOBILITY DECREASED [None]
  - POOR VENOUS ACCESS [None]
  - VEIN DISORDER [None]
